FAERS Safety Report 13230296 (Version 1)
Quarter: 2017Q1

REPORT INFORMATION
  Report Type: Report from Study
  Country: US (occurrence: US)
  Receive Date: 20170214
  Receipt Date: 20170214
  Transmission Date: 20170428
  Serious: Yes (Hospitalization)
  Sender: FDA-Public Use
  Company Number: US-B.I. PHARMACEUTICALS,INC./RIDGEFIELD-2016-BI-08930BP

PATIENT
  Sex: Male

DRUGS (1)
  1. OFEV [Suspect]
     Active Substance: NINTEDANIB
     Indication: IDIOPATHIC PULMONARY FIBROSIS
     Route: 048
     Dates: start: 20160120

REACTIONS (9)
  - Dyspnoea [Unknown]
  - Diarrhoea [Unknown]
  - Muscle spasms [Unknown]
  - Influenza like illness [Unknown]
  - Cough [Unknown]
  - Atrioventricular block [Unknown]
  - Productive cough [Unknown]
  - Hypertension [Unknown]
  - Lung infection [Unknown]
